FAERS Safety Report 5473408-3 (Version None)
Quarter: 2007Q3

REPORT INFORMATION
  Report Type: 
  Country: None (occurrence: None)
  Receive Date: 20070824
  Receipt Date: 20070523
  Transmission Date: 20080115
  Serious: Yes (Life-Threatening, Hospitalization)
  Sender: FDA-Public Use
  Company Number: WAES 0705USA04605

PATIENT
  Age: 74 Year
  Sex: Male

DRUGS (5)
  1. VYTORIN [Suspect]
     Indication: ARTERIOSCLEROSIS CORONARY ARTERY
     Dosage: 10-10 MG/DAILY/PO
     Route: 048
     Dates: start: 20070415, end: 20070518
  2. AMIODARONE HCL [Suspect]
     Indication: ARTERIOSCLEROSIS CORONARY ARTERY
     Dosage: 200 MG/BID/PO
     Route: 048
     Dates: start: 20070410, end: 20070518
  3. ALTACE [Concomitant]
  4. ASPIRIN [Concomitant]
  5. METOPROLOL TARTRATE [Concomitant]

REACTIONS (1)
  - RHABDOMYOLYSIS [None]
